FAERS Safety Report 25107334 (Version 1)
Quarter: 2025Q1

REPORT INFORMATION
  Report Type: Report from Study
  Country: US (occurrence: US)
  Receive Date: 20250321
  Receipt Date: 20250321
  Transmission Date: 20250409
  Serious: Yes (Other)
  Sender: TAIHO ONCOLOGY INC
  Company Number: US-TAIHOP-2025-003041

PATIENT
  Sex: Female

DRUGS (3)
  1. LONSURF [Suspect]
     Active Substance: TIPIRACIL HYDROCHLORIDE\TRIFLURIDINE
     Indication: Colon cancer
     Dosage: CYCLE UNKNOWN
     Route: 048
     Dates: start: 20231026
  2. ONDANSETRON [Concomitant]
     Active Substance: ONDANSETRON
     Indication: Product used for unknown indication
  3. PROCHLORPER [Concomitant]
     Indication: Product used for unknown indication

REACTIONS (2)
  - Arteriovenous fistula site haemorrhage [Unknown]
  - Inappropriate schedule of product administration [Unknown]
